FAERS Safety Report 6312786-X (Version None)
Quarter: 2009Q3

REPORT INFORMATION
  Report Type: 
  Country: None (occurrence: None)
  Receive Date: 20090817
  Receipt Date: 20090817
  Transmission Date: 20100115
  Serious: Yes (Other)
  Sender: FDA-Public Use
  Company Number: None

PATIENT
  Age: 37 Year
  Sex: Female
  Weight: 50.3493 kg

DRUGS (2)
  1. CITALOPRAM [Suspect]
     Indication: ANXIETY
     Dosage: 40 MG PO QD
  2. CITALOPRAM [Suspect]
     Indication: OSTEOARTHRITIS
     Dosage: 40 MG PO QD

REACTIONS (2)
  - ANXIETY DISORDER [None]
  - PRODUCT SUBSTITUTION ISSUE [None]
